FAERS Safety Report 6209144-5 (Version None)
Quarter: 2009Q2

REPORT INFORMATION
  Report Type: 
  Country: None (occurrence: None)
  Receive Date: 20090522
  Receipt Date: 20090410
  Transmission Date: 20091009
  Serious: No
  Sender: FDA-Public Use
  Company Number: 8041490

PATIENT
  Age: 36 Year
  Sex: Female
  Weight: 91.6 kg

DRUGS (7)
  1. CIMZIA [Suspect]
     Indication: CROHN'S DISEASE
     Dosage: 400 MG 1/2W SC
     Route: 058
     Dates: start: 20080829, end: 20080924
  2. CIMZIA [Suspect]
     Indication: CROHN'S DISEASE
     Dosage: 400 MG /M SC
     Route: 058
     Dates: start: 20081024
  3. ASACOL [Concomitant]
  4. PREDNISONE [Concomitant]
  5. ACEBUTOLOL [Concomitant]
  6. LEVOXYL [Concomitant]
  7. VITAMIN TAB [Concomitant]

REACTIONS (2)
  - TWIN PREGNANCY [None]
  - VOMITING IN PREGNANCY [None]
